FAERS Safety Report 23027414 (Version 1)
Quarter: 2023Q4

REPORT INFORMATION
  Report Type: Spontaneous
  Country: US (occurrence: US)
  Receive Date: 20231004
  Receipt Date: 20231004
  Transmission Date: 20240110
  Serious: No
  Sender: FDA-Public Use
  Company Number: US-MELINTA THERAPEUTICS, LLC-US-MLNT-23-00365

PATIENT

DRUGS (6)
  1. KIMYRSA [Suspect]
     Active Substance: ORITAVANCIN DIPHOSPHATE
     Indication: Cellulitis
     Dosage: 1200 MILLIGRAM, SINGLE
     Route: 041
     Dates: start: 20230120, end: 20230120
  2. KIMYRSA [Suspect]
     Active Substance: ORITAVANCIN DIPHOSPHATE
     Dosage: 1200 MILLIGRAM, SINGLE
     Route: 041
     Dates: start: 20230213, end: 20230213
  3. BACTRIM [Concomitant]
     Active Substance: SULFAMETHOXAZOLE\TRIMETHOPRIM
     Indication: Cellulitis
     Dosage: UNK, UNK
     Route: 048
  4. LEVAQUIN [Concomitant]
     Active Substance: LEVOFLOXACIN
     Indication: Cellulitis
     Dosage: UNK, UNK
     Route: 048
  5. TYLENOL [Concomitant]
     Active Substance: ACETAMINOPHEN
     Indication: Premedication
     Dosage: UNK, UNK
     Route: 048
     Dates: start: 20230213, end: 20230213
  6. PEPCID [Concomitant]
     Active Substance: FAMOTIDINE
     Indication: Premedication
     Dosage: UNK, UNK
     Route: 048
     Dates: start: 20230213, end: 20230213

REACTIONS (5)
  - Feeling hot [Unknown]
  - Infusion related reaction [Unknown]
  - Nausea [Unknown]
  - Vomiting [Unknown]
  - Multiple use of single-use product [Unknown]

NARRATIVE: CASE EVENT DATE: 20230213
